FAERS Safety Report 8489541-8 (Version None)
Quarter: 2012Q3

REPORT INFORMATION
  Report Type: 
  Country: None (occurrence: None)
  Receive Date: 20120705
  Receipt Date: 20120703
  Transmission Date: 20120928
  Serious: Yes (Hospitalization)
  Sender: FDA-Public Use
  Company Number: JP-BRACCO-005956

PATIENT
  Sex: Female
  Weight: 51 kg

DRUGS (2)
  1. IOPAMIDOL-370 [Suspect]
     Indication: ENDOMETRIAL CANCER
     Route: 042
     Dates: start: 20120606, end: 20120606
  2. IOPAMIDOL-370 [Suspect]
     Indication: COMPUTERISED TOMOGRAM
     Route: 042
     Dates: start: 20120606, end: 20120606

REACTIONS (7)
  - BLOOD PRESSURE DECREASED [None]
  - NAUSEA [None]
  - VOMITING [None]
  - TREMOR [None]
  - OROPHARYNGEAL PAIN [None]
  - RASH ERYTHEMATOUS [None]
  - PHARYNGEAL ERYTHEMA [None]
